FAERS Safety Report 7648864-2 (Version None)
Quarter: 2011Q3

REPORT INFORMATION
  Report Type: 
  Country: None (occurrence: None)
  Receive Date: 20110801
  Receipt Date: 20110721
  Transmission Date: 20111222
  Serious: Yes (Other)
  Sender: FDA-Public Use
  Company Number: GR-GILEAD-E2B_00001423

PATIENT
  Age: 82 Year
  Sex: Female

DRUGS (6)
  1. SINTROM [Concomitant]
  2. ATROVENT [Concomitant]
  3. DILTIAZEM HCL [Concomitant]
  4. FLUTICASONE PROPIONATE [Concomitant]
  5. IRBESARTAN [Concomitant]
  6. AMBRISENTAN [Suspect]
     Indication: PULMONARY HYPERTENSION
     Route: 065
     Dates: start: 20110706, end: 20110715

REACTIONS (4)
  - MONOCYTOSIS [None]
  - RASH MACULO-PAPULAR [None]
  - OEDEMA PERIPHERAL [None]
  - HAEMATOCRIT DECREASED [None]
